FAERS Safety Report 11446315 (Version 1)
Quarter: 2015Q3

REPORT INFORMATION
  Report Type: Spontaneous
  Country: US (occurrence: None)
  Receive Date: 20150901
  Receipt Date: 20150901
  Transmission Date: 20151125
  Serious: Yes (Hospitalization)
  Sender: FDA-Public Use
  Company Number: None

PATIENT
  Age: 28 Year
  Sex: Male
  Weight: 98 kg

DRUGS (8)
  1. FAMOTIDINE 10MG/ML 2 ML I NJ [Suspect]
     Active Substance: FAMOTIDINE
     Indication: PROPHYLAXIS
     Route: 042
     Dates: start: 20150826
  2. SUCCINYLCHOLINE [Concomitant]
     Active Substance: SUCCINYLCHOLINE
  3. ETOMIDATE. [Concomitant]
     Active Substance: ETOMIDATE
  4. FAMOTIDINE 10MG/ML 2 ML I NJ [Suspect]
     Active Substance: FAMOTIDINE
     Indication: STRESS ULCER
     Route: 042
     Dates: start: 20150826
  5. LIDOCAINE. [Concomitant]
     Active Substance: LIDOCAINE
  6. PROPOFOL. [Concomitant]
     Active Substance: PROPOFOL
  7. FENTANYL. [Concomitant]
     Active Substance: FENTANYL
  8. MIDAZOLAM [Concomitant]
     Active Substance: MIDAZOLAM\MIDAZOLAM HYDROCHLORIDE

REACTIONS (1)
  - Neutropenia [None]

NARRATIVE: CASE EVENT DATE: 20150827
